FAERS Safety Report 10022044 (Version 1)
Quarter: 2014Q1

REPORT INFORMATION
  Report Type: Spontaneous
  Country: US (occurrence: None)
  Receive Date: 20140318
  Receipt Date: 20140318
  Transmission Date: 20141002
  Serious: Yes (Hospitalization)
  Sender: FDA-Public Use
  Company Number: None

PATIENT
  Age: 75 Year
  Sex: Male
  Weight: 99 kg

DRUGS (2)
  1. FUROSEMIDE [Suspect]
     Indication: CARDIAC FAILURE CONGESTIVE
     Route: 048
     Dates: start: 20021016, end: 20140305
  2. SPIRONOLACTONE [Suspect]
     Indication: NEPHROPATHY
     Route: 048
     Dates: start: 20051222, end: 20140305

REACTIONS (2)
  - Renal failure acute [None]
  - Polyuria [None]
